FAERS Safety Report 4710722-0 (Version None)
Quarter: 2005Q3

REPORT INFORMATION
  Report Type: 
  Country: None (occurrence: None)
  Receive Date: 20050711
  Receipt Date: 20050531
  Transmission Date: 20060218
  Serious: Yes (Death, Other)
  Sender: FDA-Public Use
  Company Number: US-BRISTOL-MYERS SQUIBB COMPANY-12989414

PATIENT
  Age: 74 Year
  Sex: Female
  Weight: 66 kg

DRUGS (8)
  1. CETUXIMAB [Suspect]
     Indication: NON-SMALL CELL LUNG CANCER
     Dosage: 1ST COURSE CETTUXIMAB ON 19-APR-2005. TOTAL DOSE ADMINISTERED THIS COURSE 437 MG (COURSE 6).
     Dates: start: 20050524, end: 20050524
  2. CARBOPLATIN [Suspect]
     Indication: NON-SMALL CELL LUNG CANCER
     Dosage: 1ST COURSE ADMINISTERED 19-APR-2005 (AUC 2 WEEKLY). TOTAL DOSE ADMINISTERED 143.2 MG (COURSE 6).
     Dates: start: 20050524, end: 20050524
  3. TAXOL [Suspect]
     Indication: NON-SMALL CELL LUNG CANCER
     Dosage: 1ST COURSE 19-APR-2005. TAXOL 45 MG/M2 WEEKLY. TOTAL DOSE ADMINISTERED 78.7 MG (COURSE 6).
     Dates: start: 20050524, end: 20050524
  4. RADIATION THERAPY [Suspect]
     Indication: NON-SMALL CELL LUNG CANCER
     Dosage: 1ST COURSE 19-APR-2005. EXTERNAL BEAM NOS 4680 CENTIGRAY. NUMBER OF FRACTIONS: 26; ELAPSED DAYS: 38.
     Dates: start: 20050526, end: 20050526
  5. ALTACE [Concomitant]
  6. AVANDIA [Concomitant]
  7. PLAVIX [Concomitant]
  8. ZOCOR [Concomitant]

REACTIONS (5)
  - ANOREXIA [None]
  - DYSPHAGIA [None]
  - FATIGUE [None]
  - NAUSEA [None]
  - NON-SMALL CELL LUNG CANCER [None]
